FAERS Safety Report 6602980-2 (Version None)
Quarter: 2010Q1

REPORT INFORMATION
  Report Type: 
  Country: None (occurrence: None)
  Receive Date: 20100226
  Receipt Date: 20100217
  Transmission Date: 20100710
  Serious: Yes (Hospitalization)
  Sender: FDA-Public Use
  Company Number: US-JNJFOC-20100208524

PATIENT
  Sex: Male
  Weight: 100 kg

DRUGS (13)
  1. PANCREASE MT [Suspect]
     Indication: DRUG USE FOR UNKNOWN INDICATION
     Dosage: MT-4, 12000-4000-12000
     Route: 048
  2. PANCREASE MT [Suspect]
     Dosage: MT-10, 30000-10000-30000
     Route: 048
  3. PANCREASE MT [Suspect]
     Dosage: MT-10, 30000
     Route: 048
  4. AXITINIB [Suspect]
     Indication: RENAL CANCER
     Route: 065
  5. ZOFRAN [Concomitant]
     Route: 061
  6. NASONEX [Concomitant]
     Route: 065
  7. LOMOTIL [Concomitant]
     Route: 065
  8. NORVASC [Concomitant]
     Route: 065
  9. SYNTHROID [Concomitant]
     Route: 065
  10. CASTOR OIL [Concomitant]
     Route: 065
  11. IMODIUM [Concomitant]
     Route: 065
  12. COMPAZINE [Concomitant]
     Route: 065
  13. PROTONIX [Concomitant]
     Route: 065

REACTIONS (3)
  - DEHYDRATION [None]
  - DIARRHOEA [None]
  - VOMITING [None]
